FAERS Safety Report 25529866 (Version 1)
Quarter: 2025Q3

REPORT INFORMATION
  Report Type: Report from Study
  Country: US (occurrence: US)
  Receive Date: 20250708
  Receipt Date: 20250708
  Transmission Date: 20251021
  Serious: Yes (Hospitalization, Other)
  Sender: GILEAD
  Company Number: US-GILEAD-2025-0719759

PATIENT
  Sex: Female

DRUGS (4)
  1. AZTREONAM LYSINE [Suspect]
     Active Substance: AZTREONAM LYSINE
     Indication: Product used for unknown indication
     Dosage: INHALE 75 MG 3 TIMES DAILY, CYCLING ONE WEEK ON AND ONE WEEK OFF.
     Route: 055
  2. LEVALBUTEROL [Concomitant]
     Active Substance: LEVALBUTEROL
  3. PULMICORT TURBUHALER [Concomitant]
     Active Substance: BUDESONIDE
  4. SODIUM CHLORIDE [Concomitant]
     Active Substance: SODIUM CHLORIDE

REACTIONS (3)
  - Infection [Unknown]
  - Pneumonia [Unknown]
  - Product use issue [Not Recovered/Not Resolved]
